FAERS Safety Report 25005215 (Version 2)
Quarter: 2025Q1

REPORT INFORMATION
  Report Type: Spontaneous
  Country: US (occurrence: US)
  Receive Date: 20250224
  Receipt Date: 20250312
  Transmission Date: 20250409
  Serious: Yes (Other)
  Sender: BAYER HEALTHCARE PHARMACEUTICALS INC.
  Company Number: US-BAYER-2025A025247

PATIENT
  Age: 43 Year
  Sex: Female

DRUGS (1)
  1. MIRENA [Suspect]
     Active Substance: LEVONORGESTREL
     Indication: Intrauterine contraception
     Dosage: 20?G/DAY
     Route: 015
     Dates: start: 202201

REACTIONS (6)
  - Pelvic inflammatory disease [None]
  - Pelvic abscess [None]
  - Pelvic pain [Recovered/Resolved]
  - Device dislocation [Not Recovered/Not Resolved]
  - Abdominal pain lower [Recovered/Resolved]
  - Vaginal discharge [None]

NARRATIVE: CASE EVENT DATE: 20250117
